FAERS Safety Report 9610397 (Version 2)
Quarter: 2013Q4

REPORT INFORMATION
  Report Type: Spontaneous
  Country: US (occurrence: US)
  Receive Date: 20131009
  Receipt Date: 20131009
  Transmission Date: 20140711
  Serious: No
  Sender: FDA-Public Use
  Company Number: US-PURDUE-USA-2012-0097266

PATIENT
  Age: 51 Year
  Sex: Female
  Weight: 60.77 kg

DRUGS (3)
  1. BUTRANS [Suspect]
     Indication: FIBROMYALGIA
     Dosage: 20 MCG/HR, 1/WEEK
     Route: 062
     Dates: start: 20121217, end: 201301
  2. BUTRANS [Suspect]
     Dosage: 5 MCG, UNK
     Route: 062
     Dates: start: 201209
  3. BUTRANS [Suspect]
     Dosage: 10 MCG, UNK
     Route: 062

REACTIONS (7)
  - Application site odour [Unknown]
  - Application site papules [Recovering/Resolving]
  - Application site pruritus [Recovering/Resolving]
  - Application site pain [Recovering/Resolving]
  - Application site vesicles [Recovering/Resolving]
  - Inadequate analgesia [Unknown]
  - Product odour abnormal [Unknown]
